FAERS Safety Report 17230786 (Version 4)
Quarter: 2020Q4

REPORT INFORMATION
  Report Type: Report from Study
  Country: AU (occurrence: AU)
  Receive Date: 20200103
  Receipt Date: 20201207
  Transmission Date: 20210113
  Serious: Yes (Death, Life-Threatening)
  Sender: FDA-Public Use
  Company Number: AU-PFIZER INC-2019562006

PATIENT
  Age: 66 Year
  Sex: Male
  Weight: 84.4 kg

DRUGS (8)
  1. METHOTREXATE. [Suspect]
     Active Substance: METHOTREXATE
     Dosage: 10 MG/M2, 1X/DAY INTRAVENOUS BOLUS
     Route: 040
     Dates: start: 20191223, end: 20191223
  2. DAUNORUBICIN [Suspect]
     Active Substance: DAUNORUBICIN
     Indication: ACUTE MYELOID LEUKAEMIA
     Dosage: 121 MG, DAILY BY INFUSION, INDUCTION
     Route: 041
     Dates: start: 20190904, end: 20190906
  3. METHOTREXATE. [Suspect]
     Active Substance: METHOTREXATE
     Dosage: 10 MG/M2, 1X/DAY INTRAVENOUS BOLUS
     Route: 040
     Dates: start: 20191215, end: 20191215
  4. METHOTREXATE. [Suspect]
     Active Substance: METHOTREXATE
     Dosage: 10 MG/M2, 1X/DAY INTRAVENOUS BOLUS
     Route: 040
     Dates: start: 20191218, end: 20191218
  5. PLACEBO [Suspect]
     Active Substance: UNSPECIFIED INGREDIENT
     Indication: ACUTE MYELOID LEUKAEMIA
     Dosage: UNK UNK, 1X/DAY, CONTINUOUS
     Route: 048
     Dates: start: 20190904, end: 20191203
  6. CYTARABINE. [Suspect]
     Active Substance: CYTARABINE
     Indication: ACUTE MYELOID LEUKAEMIA
     Dosage: 201 MG, DAILY BY CONTINUOUS INFUSION, INDUCTION
     Route: 041
     Dates: start: 20190904, end: 20190911
  7. CYTARABINE. [Suspect]
     Active Substance: CYTARABINE
     Indication: ACUTE MYELOID LEUKAEMIA
     Dosage: 2.01 G, CONSOLIDATION
     Route: 042
     Dates: start: 20191010, end: 20191015
  8. METHOTREXATE. [Suspect]
     Active Substance: METHOTREXATE
     Indication: GRAFT VERSUS HOST DISEASE
     Dosage: 15 MG/M2, 1X/DAY INTRAVENOUS BOLUS
     Route: 040
     Dates: start: 20191213, end: 20191213

REACTIONS (1)
  - Acute kidney injury [Not Recovered/Not Resolved]

NARRATIVE: CASE EVENT DATE: 20191222
